FAERS Safety Report 10532942 (Version 1)
Quarter: 2014Q4

REPORT INFORMATION
  Report Type: Spontaneous
  Country: US (occurrence: US)
  Receive Date: 20141022
  Receipt Date: 20141022
  Transmission Date: 20150529
  Serious: Yes (Other)
  Sender: FDA-Public Use
  Company Number: US-AMGEN-USASP2014080782

PATIENT
  Age: 55 Year
  Sex: Female

DRUGS (1)
  1. ENBREL [Suspect]
     Active Substance: ETANERCEPT
     Indication: PRODUCT USED FOR UNKNOWN INDICATION
     Dosage: UNK
     Route: 065
     Dates: end: 20141003

REACTIONS (8)
  - Rhinorrhoea [Unknown]
  - Fatigue [Unknown]
  - Tooth infection [Unknown]
  - Sinusitis [Unknown]
  - White blood cell count decreased [Unknown]
  - Malaise [Unknown]
  - Nasopharyngitis [Unknown]
  - Chills [Unknown]
